FAERS Safety Report 21774225 (Version 1)
Quarter: 2022Q4

REPORT INFORMATION
  Report Type: Spontaneous
  Country: US (occurrence: US)
  Receive Date: 20221224
  Receipt Date: 20221224
  Transmission Date: 20230113
  Serious: No
  Sender: FDA-Public Use
  Company Number: US-GSKCCFUS-Case-01584791_AE-89523

PATIENT
  Age: 64 Year
  Sex: Female

DRUGS (1)
  1. NUCALA [Suspect]
     Active Substance: MEPOLIZUMAB
     Indication: Asthma
     Dosage: 100 MG/ML, Z (EVERY 30 DAYS)
     Route: 058
     Dates: start: 20221217

REACTIONS (6)
  - Myalgia [Recovered/Resolved]
  - Pain [Unknown]
  - Headache [Recovered/Resolved]
  - Spinal pain [Not Recovered/Not Resolved]
  - Injection site pain [Unknown]
  - Sneezing [Recovered/Resolved]

NARRATIVE: CASE EVENT DATE: 20221201
